FAERS Safety Report 15211504 (Version 1)
Quarter: 2018Q3

REPORT INFORMATION
  Report Type: Spontaneous
  Country: US (occurrence: US)
  Receive Date: 20180702
  Receipt Date: 20180702
  Transmission Date: 20181010
  Serious: Yes (Other)
  Sender: FDA-Public Use
  Company Number: None

PATIENT
  Age: 32 Year
  Sex: Female
  Weight: 83.25 kg

DRUGS (1)
  1. NUVARING [Suspect]
     Active Substance: ETHINYL ESTRADIOL\ETONOGESTREL
     Indication: CONTRACEPTION
     Dosage: ?          QUANTITY:1 ONE RING;OTHER FREQUENCY:EVERY MONTH;?
     Route: 067
     Dates: start: 20180402, end: 20180620

REACTIONS (6)
  - Parosmia [None]
  - Amnesia [None]
  - Lethargy [None]
  - Decreased appetite [None]
  - Weight increased [None]
  - Bedridden [None]

NARRATIVE: CASE EVENT DATE: 20180501
